FAERS Safety Report 8520111 (Version 2)
Quarter: 2012Q4

REPORT INFORMATION
  Report Type: 
  Country: US (occurrence: US)
  Receive Date: 20120418
  Receipt Date: 20121030
  Transmission Date: 20130627
  Serious: Yes (Hospitalization)
  Sender: FDA-Public Use
  Company Number: US-US-EMD SERONO, INC.-7125424

PATIENT
  Age: 45 Year
  Sex: Female
  Weight: 96 kg

DRUGS (9)
  1. REBIF [Suspect]
     Indication: MULTIPLE SCLEROSIS
     Route: 058
     Dates: start: 20120306
  2. CALCIUM [Concomitant]
     Indication: MINERAL SUPPLEMENTATION
  3. MAGNESIUM [Concomitant]
     Indication: MINERAL SUPPLEMENTATION
  4. VITAMIN D [Concomitant]
     Indication: VITAMIN SUPPLEMENTATION
  5. VITAMIN B12 [Concomitant]
     Indication: VITAMIN SUPPLEMENTATION
  6. CYMBALTA [Concomitant]
     Indication: DEPRESSION
  7. CYMBALTA [Concomitant]
     Indication: ANXIETY
  8. CYMBALTA [Concomitant]
     Indication: PAIN
  9. ADVIL [Concomitant]
     Indication: PREMEDICATION

REACTIONS (5)
  - Upper limb fracture [Recovering/Resolving]
  - Joint dislocation [Recovering/Resolving]
  - Fall [Recovering/Resolving]
  - Head injury [Recovering/Resolving]
  - Injection site pain [Not Recovered/Not Resolved]
